FAERS Safety Report 18944553 (Version 1)
Quarter: 2021Q1

REPORT INFORMATION
  Report Type: Spontaneous
  Country: US (occurrence: US)
  Receive Date: 20210226
  Receipt Date: 20210226
  Transmission Date: 20210420
  Serious: Yes (Other)
  Sender: FDA-Public Use
  Company Number: None

PATIENT
  Age: 65 Year
  Sex: Male
  Weight: 68.4 kg

DRUGS (2)
  1. DOCUSATE 100MG [Concomitant]
     Active Substance: DOCUSATE
  2. CAPECITABINE. [Suspect]
     Active Substance: CAPECITABINE
     Indication: GALLBLADDER CANCER
     Dosage: ?          OTHER FREQUENCY:BID X14DAYS, 7 OFF;?
     Route: 048
     Dates: start: 20201111, end: 20210225

REACTIONS (1)
  - Disease progression [None]

NARRATIVE: CASE EVENT DATE: 20210225
